FAERS Safety Report 9322305 (Version 1)
Quarter: 2013Q2

REPORT INFORMATION
  Report Type: Spontaneous
  Country: US (occurrence: US)
  Receive Date: 20130531
  Receipt Date: 20130531
  Transmission Date: 20140414
  Serious: Yes (Other)
  Sender: FDA-Public Use
  Company Number: US-AMGEN-USASP2013038497

PATIENT
  Sex: Male

DRUGS (2)
  1. PROLIA [Suspect]
     Indication: BONE LOSS
     Dosage: UNK
     Dates: start: 2012
  2. LUPRON [Suspect]

REACTIONS (1)
  - Sudden hearing loss [Unknown]
